FAERS Safety Report 21163200 (Version 1)
Quarter: 2022Q3

REPORT INFORMATION
  Report Type: Spontaneous
  Country: US (occurrence: US)
  Receive Date: 20220802
  Receipt Date: 20220802
  Transmission Date: 20221026
  Serious: No
  Sender: FDA-Public Use
  Company Number: US-PFIZER INC-PV202200033817

PATIENT
  Age: 5 Decade
  Sex: Male

DRUGS (5)
  1. TOFACITINIB [Suspect]
     Active Substance: TOFACITINIB
     Indication: Cutaneous lupus erythematosus
     Dosage: TOFACITINIB 2%
  2. DAPSONE [Suspect]
     Active Substance: DAPSONE
     Indication: Cutaneous lupus erythematosus
     Dosage: UNK
  3. HYDROXYCHLOROQUINE [Suspect]
     Active Substance: HYDROXYCHLOROQUINE
     Indication: Cutaneous lupus erythematosus
     Dosage: UNK
  4. TRIAMCINOLONE [Suspect]
     Active Substance: TRIAMCINOLONE
     Indication: Cutaneous lupus erythematosus
     Dosage: UNK, AS NEEDED
  5. USTEKINUMAB [Suspect]
     Active Substance: USTEKINUMAB
     Indication: Cutaneous lupus erythematosus
     Dosage: UNK

REACTIONS (2)
  - Off label use [Unknown]
  - Drug effective for unapproved indication [Unknown]
